FAERS Safety Report 5354558-9 (Version None)
Quarter: 2007Q2

REPORT INFORMATION
  Report Type: 
  Country: None (occurrence: None)
  Receive Date: 20070612
  Receipt Date: 20070531
  Transmission Date: 20071010
  Serious: Yes (Other)
  Sender: FDA-Public Use
  Company Number: US-ASTRAZENECA-2006UW08401

PATIENT
  Sex: Male
  Weight: 82.7 kg

DRUGS (2)
  1. SEROQUEL [Suspect]
     Indication: MENTAL DISORDER
     Route: 048
     Dates: start: 20041117, end: 20060101
  2. LEXAPRO [Concomitant]
     Dosage: 6/22/2005

REACTIONS (2)
  - HYPERGLYCAEMIA [None]
  - TARDIVE DYSKINESIA [None]
